FAERS Safety Report 17519141 (Version 1)
Quarter: 2020Q1

REPORT INFORMATION
  Report Type: Spontaneous
  Country: US (occurrence: US)
  Receive Date: 20200310
  Receipt Date: 20200310
  Transmission Date: 20200409
  Serious: Yes (Death)
  Sender: FDA-Public Use
  Company Number: US-GW PHARMA-202002USGW00756

PATIENT

DRUGS (1)
  1. EPIDIOLEX [Suspect]
     Active Substance: CANNABIDIOL
     Indication: PRODUCT USED FOR UNKNOWN INDICATION
     Dosage: 650 MILLIGRAM, BID
     Route: 048

REACTIONS (3)
  - Seizure [Fatal]
  - Cardiac arrest [Fatal]
  - Brain death [Fatal]

NARRATIVE: CASE EVENT DATE: 20200221
